FAERS Safety Report 21834989 (Version 1)
Quarter: 2023Q1

REPORT INFORMATION
  Report Type: Report from Study
  Country: US (occurrence: US)
  Receive Date: 20230109
  Receipt Date: 20230109
  Transmission Date: 20230418
  Serious: No
  Sender: FDA-Public Use
  Company Number: US-ABBVIE-4260322

PATIENT
  Sex: Female

DRUGS (1)
  1. IMBRUVICA [Suspect]
     Active Substance: IBRUTINIB
     Indication: Product used for unknown indication
     Dosage: START DATE FOR EVENTS SHOULD BE 2022
     Route: 048
     Dates: start: 20220901

REACTIONS (2)
  - Memory impairment [Not Recovered/Not Resolved]
  - Lymphadenopathy [Not Recovered/Not Resolved]
